FAERS Safety Report 15415095 (Version 5)
Quarter: 2023Q2

REPORT INFORMATION
  Report Type: Spontaneous
  Country: US (occurrence: US)
  Receive Date: 20180921
  Receipt Date: 20230418
  Transmission Date: 20230721
  Serious: Yes (Hospitalization, Other)
  Sender: FDA-Public Use
  Company Number: US-PFIZER INC-2018307651

PATIENT
  Age: 16 Year
  Sex: Female
  Weight: 39 kg

DRUGS (13)
  1. IMIPENEM AND CILASTATIN [Suspect]
     Active Substance: CILASTATIN SODIUM\IMIPENEM
     Indication: Product used for unknown indication
     Dosage: UNK
     Route: 042
     Dates: start: 20171110, end: 20180619
  2. TEDIZOLID PHOSPHATE [Suspect]
     Active Substance: TEDIZOLID PHOSPHATE
     Indication: Mycobacterium abscessus infection
     Dosage: 100 MILLIGRAM, Q24H
     Route: 048
     Dates: end: 20171219
  3. CLOFAZIMINE [Suspect]
     Active Substance: CLOFAZIMINE
     Indication: Mycobacterial infection
     Dosage: 50 MILLIGRAM, QD
     Route: 048
     Dates: start: 20171127
  4. CLOFAZIMINE [Suspect]
     Active Substance: CLOFAZIMINE
     Dosage: UNK
     Route: 048
     Dates: end: 20180416
  5. CLOFAZIMINE [Suspect]
     Active Substance: CLOFAZIMINE
     Dosage: UNK
     Route: 048
     Dates: start: 20180511, end: 20180709
  6. AMIKACIN [Suspect]
     Active Substance: AMIKACIN
     Indication: Product used for unknown indication
     Dosage: UNK
     Route: 055
  7. TIGECYCLINE [Interacting]
     Active Substance: TIGECYCLINE
     Indication: Mycobacterium abscessus infection
     Dosage: 100 MG, QD (ALSO REPORTED AS 50 MG, BID)
     Route: 042
     Dates: start: 20170415, end: 20180709
  8. MYCOPHENOLATE MOFETIL [Concomitant]
     Active Substance: MYCOPHENOLATE MOFETIL
     Indication: Product used for unknown indication
     Dosage: UNK
     Route: 065
     Dates: start: 20180203
  9. POSACONAZOLE [Concomitant]
     Active Substance: POSACONAZOLE
     Indication: Product used for unknown indication
     Dosage: UNK
     Route: 048
     Dates: start: 20180205, end: 20180405
  10. VALGANCICLOVIR HYDROCHLORIDE [Concomitant]
     Active Substance: VALGANCICLOVIR HYDROCHLORIDE
     Indication: Product used for unknown indication
     Dosage: UNK
  11. PREDNISONE [Concomitant]
     Active Substance: PREDNISONE
     Indication: Product used for unknown indication
     Dosage: UNK
     Route: 048
     Dates: start: 20180203
  12. AZITHROMYCIN [Concomitant]
     Active Substance: AZITHROMYCIN
     Indication: Product used for unknown indication
     Dosage: UNK
     Route: 048
     Dates: start: 20180205
  13. TACROLIMUS [Concomitant]
     Active Substance: TACROLIMUS
     Indication: Hypertriglyceridaemia
     Dosage: UNK
     Route: 048
     Dates: start: 20180203, end: 20180504

REACTIONS (12)
  - Diarrhoea [Unknown]
  - Hepatitis cholestatic [Recovered/Resolved]
  - Thrombocytopenia [Recovered/Resolved]
  - Pancreatic disorder [Unknown]
  - Neutropenia [Unknown]
  - Hair colour changes [Unknown]
  - Hypertriglyceridaemia [Recovered/Resolved]
  - Drug interaction [Unknown]
  - Neuropathy peripheral [Unknown]
  - Adenovirus infection [Recovered/Resolved]
  - Pyrexia [Unknown]
  - Product administered to patient of inappropriate age [Unknown]

NARRATIVE: CASE EVENT DATE: 20180328
